FAERS Safety Report 20686744 (Version 2)
Quarter: 2023Q1

REPORT INFORMATION
  Report Type: Spontaneous
  Country: US (occurrence: US)
  Receive Date: 20220407
  Receipt Date: 20230329
  Transmission Date: 20230418
  Serious: No
  Sender: FDA-Public Use
  Company Number: US-SA-SAC20220406001379

PATIENT
  Age: 25 Year
  Sex: Male

DRUGS (1)
  1. LUMIZYME [Suspect]
     Active Substance: ALGLUCOSIDASE ALFA
     Dosage: 2200 MG, QOW
     Route: 042
     Dates: end: 20230323

REACTIONS (2)
  - Ear infection [Unknown]
  - Pain [Unknown]

NARRATIVE: CASE EVENT DATE: 20230301
